FAERS Safety Report 4865707-0 (Version None)
Quarter: 2005Q4

REPORT INFORMATION
  Report Type: 
  Country: None (occurrence: None)
  Receive Date: 20051220
  Receipt Date: 20040517
  Transmission Date: 20060501
  Serious: Yes (Hospitalization)
  Sender: FDA-Public Use
  Company Number: OXP20050002

PATIENT
  Age: 39 Year
  Sex: Female

DRUGS (2)
  1. OXAPROZIN [Suspect]
     Indication: BACK PAIN
     Dosage: 600 MG PO
     Route: 048
     Dates: start: 20030723
  2. LISINOPRIL/HCTZ EON LABS [Suspect]
     Indication: HYPERTENSION
     Dosage: PO
     Route: 048
     Dates: start: 20030801

REACTIONS (5)
  - DIALYSIS [None]
  - INFLUENZA LIKE ILLNESS [None]
  - RENAL FAILURE [None]
  - RENAL INJURY [None]
  - VOMITING [None]
